FAERS Safety Report 4834705-5 (Version None)
Quarter: 2005Q4

REPORT INFORMATION
  Report Type: 
  Country: None (occurrence: None)
  Receive Date: 20051122
  Receipt Date: 20050629
  Transmission Date: 20060501
  Serious: No
  Sender: FDA-Public Use
  Company Number: US-BRISTOL-MYERS SQUIBB COMPANY-13019138

PATIENT
  Age: 77 Year
  Sex: Male
  Weight: 74 kg

DRUGS (1)
  1. PRAVACHOL [Suspect]
     Route: 048
     Dates: start: 20041001, end: 20050301

REACTIONS (3)
  - DISORIENTATION [None]
  - DYSPEPSIA [None]
  - SLEEP DISORDER [None]
